FAERS Safety Report 17075856 (Version 1)
Quarter: 2019Q4

REPORT INFORMATION
  Report Type: Spontaneous
  Country: JP (occurrence: JP)
  Receive Date: 20191126
  Receipt Date: 20191126
  Transmission Date: 20200122
  Serious: Yes (Congenital Anomaly)
  Sender: FDA-Public Use
  Company Number: JP-ALLERGAN-1941685US

PATIENT

DRUGS (1)
  1. BOTOX [Suspect]
     Active Substance: ONABOTULINUMTOXINA
     Indication: EXPOSURE DURING PREGNANCY
     Dosage: 1 ML, QD
     Route: 064
     Dates: start: 20160323, end: 20160323

REACTIONS (1)
  - Congenital anomaly [Unknown]
